FAERS Safety Report 9332785 (Version 3)
Quarter: 2013Q3

REPORT INFORMATION
  Report Type: Report from Study
  Country: CO (occurrence: CO)
  Receive Date: 20130606
  Receipt Date: 20130709
  Transmission Date: 20140515
  Serious: Yes (Hospitalization)
  Sender: FDA-Public Use
  Company Number: CO-ROCHE-1233229

PATIENT
  Age: 9 Year
  Sex: Female

DRUGS (2)
  1. CELLCEPT [Suspect]
     Indication: LIVER TRANSPLANT
     Route: 048
     Dates: start: 20120821
  2. CELLCEPT [Suspect]
     Route: 048
     Dates: start: 20120821

REACTIONS (3)
  - Jaundice [Recovering/Resolving]
  - Transplant rejection [Unknown]
  - Hyperbilirubinaemia [Not Recovered/Not Resolved]
